FAERS Safety Report 4530073-7 (Version None)
Quarter: 2004Q4

REPORT INFORMATION
  Report Type: 
  Country: None (occurrence: None)
  Receive Date: 20041215
  Receipt Date: 20041130
  Transmission Date: 20050328
  Serious: Yes (Other)
  Sender: FDA-Public Use
  Company Number: 205831

PATIENT
  Age: 53 Year
  Sex: Female

DRUGS (8)
  1. AVONEX [Suspect]
     Indication: MULTIPLE SCLEROSIS
     Dosage: 30 UG;QW;  IM
     Route: 030
     Dates: start: 20040101
  2. BACLOFEN [Concomitant]
  3. ZANAFLEX [Concomitant]
  4. VICODIN [Concomitant]
  5. NORVASC [Concomitant]
  6. AMANTIDINE [Concomitant]
  7. PERI-COLACE [Concomitant]
  8. CASTROL OIL [Concomitant]

REACTIONS (2)
  - BREAST CANCER IN SITU [None]
  - OESTROGEN RECEPTOR ASSAY POSITIVE [None]
